FAERS Safety Report 14314355 (Version 1)
Quarter: 2017Q4

REPORT INFORMATION
  Report Type: Spontaneous
  Country: US (occurrence: US)
  Receive Date: 20171221
  Receipt Date: 20171221
  Transmission Date: 20180321
  Serious: No
  Sender: FDA-Public Use
  Company Number: None

PATIENT
  Age: 20 Year
  Sex: Male

DRUGS (1)
  1. MYCOPHENOLATE 500MG ACCORD [Suspect]
     Active Substance: MYCOPHENOLATE MOFETIL
     Indication: RETINAL VASCULITIS
     Route: 048
     Dates: start: 20170728

REACTIONS (3)
  - Night sweats [None]
  - Skin exfoliation [None]
  - Paraesthesia [None]

NARRATIVE: CASE EVENT DATE: 20171101
